FAERS Safety Report 10098759 (Version 1)
Quarter: 2014Q2

REPORT INFORMATION
  Report Type: Report from Study
  Country: MY (occurrence: MY)
  Receive Date: 20140423
  Receipt Date: 20140423
  Transmission Date: 20141212
  Serious: Yes (Hospitalization)
  Sender: FDA-Public Use
  Company Number: MY-BAYER-2014-055434

PATIENT
  Age: 81 Year
  Sex: Female

DRUGS (3)
  1. ASPIRIN [Suspect]
     Dosage: UNK
  2. CLOPIDOGREL [Interacting]
  3. PANTOPRAZOLE [Concomitant]
     Indication: DUODENAL ULCER

REACTIONS (4)
  - Gastrointestinal haemorrhage [None]
  - Melaena [None]
  - Anaemia [None]
  - Labelled drug-drug interaction medication error [None]
